FAERS Safety Report 7051762-9 (Version None)
Quarter: 2010Q4

REPORT INFORMATION
  Report Type: 
  Country: None (occurrence: None)
  Receive Date: 20101019
  Receipt Date: 20101013
  Transmission Date: 20110411
  Serious: Yes (Death, Other)
  Sender: FDA-Public Use
  Company Number: PHHY2010JP68871

PATIENT
  Age: 21 Year
  Sex: Female

DRUGS (2)
  1. SIMULECT [Suspect]
     Dosage: UNK
     Route: 042
  2. CELLCEPT [Concomitant]
     Route: 048

REACTIONS (11)
  - CONDITION AGGRAVATED [None]
  - CONVULSION [None]
  - HEPATIC FUNCTION ABNORMAL [None]
  - HYDROCEPHALUS [None]
  - INTRAVENTRICULAR HAEMORRHAGE [None]
  - LIVER TRANSPLANT REJECTION [None]
  - LUNG DISORDER [None]
  - MECHANICAL VENTILATION [None]
  - RENAL IMPAIRMENT [None]
  - SEPSIS [None]
  - SUBDURAL HAEMATOMA [None]
